FAERS Safety Report 18633606 (Version 2)
Quarter: 2020Q4

REPORT INFORMATION
  Report Type: Spontaneous
  Country: ZA (occurrence: ZA)
  Receive Date: 20201218
  Receipt Date: 20201228
  Transmission Date: 20210114
  Serious: Yes (Hospitalization, Other)
  Sender: FDA-Public Use
  Company Number: ZA-B.I. PHARMACEUTICALS,INC./RIDGEFIELD-2020-BI-068480

PATIENT
  Age: 45 Year
  Sex: Male
  Weight: 75 kg

DRUGS (10)
  1. BUMETANIDE. [Concomitant]
     Active Substance: BUMETANIDE
     Indication: CARDIAC FAILURE CONGESTIVE
     Dosage: DOSE REDUCED TO 2 MG
  2. VALSARTAN. [Concomitant]
     Active Substance: VALSARTAN
     Indication: CARDIAC FAILURE CONGESTIVE
  3. BISOPROLOL [Concomitant]
     Active Substance: BISOPROLOL
     Indication: CARDIAC FAILURE CONGESTIVE
  4. PRADAXA [Suspect]
     Active Substance: DABIGATRAN ETEXILATE MESYLATE
     Indication: ATRIAL FIBRILLATION
     Dosage: PRADAXA  DOSE REDUCED TO 110MG TWICE A DAY
     Route: 048
     Dates: start: 20201101
  5. SPIRACTIN [SPIRONOLACTONE] [Concomitant]
     Active Substance: SPIRONOLACTONE
     Indication: CARDIAC FAILURE CONGESTIVE
  6. BUMETANIDE. [Concomitant]
     Active Substance: BUMETANIDE
  7. DIGOXIN. [Concomitant]
     Active Substance: DIGOXIN
     Indication: CARDIAC FAILURE CONGESTIVE
  8. POTASSIUM [Concomitant]
     Active Substance: POTASSIUM
     Indication: CARDIAC FAILURE CONGESTIVE
  9. THIAMINE. [Concomitant]
     Active Substance: THIAMINE
     Indication: PRODUCT USED FOR UNKNOWN INDICATION
  10. PRADAXA [Suspect]
     Active Substance: DABIGATRAN ETEXILATE MESYLATE
     Route: 048

REACTIONS (6)
  - Haematemesis [Recovered/Resolved]
  - Acute kidney injury [Recovered/Resolved]
  - Cardiac arrest [Recovered/Resolved]
  - Hyperkalaemia [Recovered/Resolved]
  - Gastric ulcer [Recovered/Resolved]
  - Myocardial infarction [Recovered/Resolved]

NARRATIVE: CASE EVENT DATE: 20201116
